FAERS Safety Report 24250800 (Version 1)
Quarter: 2024Q3

REPORT INFORMATION
  Report Type: Spontaneous
  Country: US (occurrence: US)
  Receive Date: 20240826
  Receipt Date: 20240826
  Transmission Date: 20241016
  Serious: No
  Sender: MEDEXUS PHARMA
  Company Number: US-MEDEXUS PHARMA, INC.-2024MED00059

PATIENT
  Sex: Female

DRUGS (1)
  1. RASUVO [Suspect]
     Active Substance: METHOTREXATE SODIUM
     Dosage: UNK INJECTED AROUND HER NAVAL

REACTIONS (2)
  - Injection site haemorrhage [Not Recovered/Not Resolved]
  - Product packaging issue [Not Recovered/Not Resolved]

NARRATIVE: CASE EVENT DATE: 20240101
